FAERS Safety Report 19295273 (Version 1)
Quarter: 2021Q2

REPORT INFORMATION
  Report Type: Spontaneous
  Country: US (occurrence: US)
  Receive Date: 20210524
  Receipt Date: 20210524
  Transmission Date: 20210717
  Serious: Yes (Other)
  Sender: FDA-Public Use
  Company Number: US-PFIZER INC-2021546937

PATIENT
  Age: 55 Year

DRUGS (1)
  1. PREMPRO [Suspect]
     Active Substance: ESTROGENS, CONJUGATED\MEDROXYPROGESTERONE ACETATE
     Dosage: UNK

REACTIONS (5)
  - Blood cholesterol increased [Unknown]
  - Colitis [Unknown]
  - Diabetes mellitus [Unknown]
  - Crohn^s disease [Unknown]
  - Hypertension [Unknown]
